FAERS Safety Report 4951437-3 (Version None)
Quarter: 2006Q1

REPORT INFORMATION
  Report Type: 
  Country: None (occurrence: None)
  Receive Date: 20060317
  Receipt Date: 20060309
  Transmission Date: 20060701
  Serious: Yes (Hospitalization, Other)
  Sender: FDA-Public Use
  Company Number: HQWYE945223FEB06

PATIENT
  Age: 38 Year
  Sex: Male

DRUGS (8)
  1. CYCLOSPORINE [Suspect]
     Indication: PROPHYLAXIS AGAINST TRANSPLANT REJECTION
     Dosage: 300 MG 2X PER 1 DAY
     Route: 048
     Dates: start: 20060208
  2. MYCOPHENOLATE MOFETIL [Concomitant]
  3. PREDNISONE TAB [Concomitant]
  4. BACTRIM [Concomitant]
  5. VALTREX [Concomitant]
  6. NYSTATIN [Concomitant]
  7. OMEPRAZOLE [Concomitant]
  8. ATENOLOL [Concomitant]

REACTIONS (3)
  - BLOOD CREATININE INCREASED [None]
  - HAEMATURIA [None]
  - TRANSPLANT REJECTION [None]
